FAERS Safety Report 5144435-0 (Version None)
Quarter: 2006Q4

REPORT INFORMATION
  Report Type: 
  Country: None (occurrence: None)
  Receive Date: 20061031
  Receipt Date: 20061012
  Transmission Date: 20070319
  Serious: Yes (Other)
  Sender: FDA-Public Use
  Company Number: 2006129792

PATIENT
  Sex: Female

DRUGS (1)
  1. CELEBREX [Suspect]
     Dosage: 200 MG

REACTIONS (2)
  - CEREBROVASCULAR DISORDER [None]
  - MYOCARDIAL INFARCTION [None]
